FAERS Safety Report 7300004-5 (Version None)
Quarter: 2011Q1

REPORT INFORMATION
  Report Type: 
  Country: None (occurrence: None)
  Receive Date: 20110208
  Receipt Date: 20110128
  Transmission Date: 20110831
  Serious: Yes (Other)
  Sender: FDA-Public Use
  Company Number: DSU-2011-00770

PATIENT
  Sex: Male

DRUGS (2)
  1. ALL OTHER MEDICATIONS (INGREDIENTS UNSPECIFIED) (ALL OTHER THERAPEUTIC [Suspect]
     Indication: PRODUCT USED FOR UNKNOWN INDICATION
  2. WELCHOL [Suspect]
     Indication: PRODUCT USED FOR UNKNOWN INDICATION
     Dosage: PER ORAL
     Route: 048

REACTIONS (1)
  - CONVULSION [None]
